FAERS Safety Report 19789003 (Version 12)
Quarter: 2025Q4

REPORT INFORMATION
  Report Type: Report from Study
  Country: US (occurrence: US)
  Receive Date: 20210904
  Receipt Date: 20251111
  Transmission Date: 20260117
  Serious: Yes (Hospitalization, Other)
  Sender: TAKEDA
  Company Number: US-TAKEDA-US202028915

PATIENT
  Age: 59 Year
  Sex: Female

DRUGS (7)
  1. HUMAN IMMUNOGLOBULIN G [Suspect]
     Active Substance: HUMAN IMMUNOGLOBULIN G
     Indication: IgG deficiency
     Dosage: UNK
  2. HUMAN IMMUNOGLOBULIN G [Suspect]
     Active Substance: HUMAN IMMUNOGLOBULIN G
     Indication: Selective IgM immunodeficiency
     Dosage: 10 GRAM, 1/WEEK
  3. HUMAN IMMUNOGLOBULIN G [Suspect]
     Active Substance: HUMAN IMMUNOGLOBULIN G
     Indication: Hypogammaglobulinaemia
  4. HUMAN IMMUNOGLOBULIN G [Suspect]
     Active Substance: HUMAN IMMUNOGLOBULIN G
     Indication: Primary immunodeficiency syndrome
  5. COVID-19 VACCINE NOS [Suspect]
     Active Substance: COVID-19 VACCINE
     Indication: COVID-19 immunisation
     Dosage: UNK
  6. XYLOMETAZOLINE HYDROCHLORIDE [Suspect]
     Active Substance: XYLOMETAZOLINE HYDROCHLORIDE
     Indication: Nasal dryness
     Dosage: UNK
  7. PENICILLIN [Suspect]
     Active Substance: PENICILLIN
     Indication: Product used for unknown indication
     Dosage: UNK

REACTIONS (29)
  - Streptococcal urinary tract infection [Unknown]
  - Drug hypersensitivity [Unknown]
  - Colitis ulcerative [Unknown]
  - Malignant melanoma [Unknown]
  - Foreign body sensation in eyes [Unknown]
  - Rhinalgia [Unknown]
  - Polycythaemia [Unknown]
  - Nasal dryness [Unknown]
  - Joint injury [Unknown]
  - Nasal discomfort [Unknown]
  - Sinusitis [Unknown]
  - Asthma [Unknown]
  - Infusion site reaction [Unknown]
  - Foot fracture [Unknown]
  - Device issue [Unknown]
  - Blood pressure decreased [Unknown]
  - Dermatitis contact [Unknown]
  - Weight decreased [Unknown]
  - Insomnia [Unknown]
  - Pain [Unknown]
  - Flushing [Unknown]
  - Pyrexia [Unknown]
  - Vomiting [Unknown]
  - Headache [Unknown]
  - Nausea [Unknown]
  - Cardiac murmur [Unknown]
  - Iron deficiency anaemia [Unknown]
  - Lung disorder [Unknown]
  - Postmenopause [Unknown]

NARRATIVE: CASE EVENT DATE: 20220304
